FAERS Safety Report 13733146 (Version 1)
Quarter: 2017Q3

REPORT INFORMATION
  Report Type: Spontaneous
  Country: US (occurrence: US)
  Receive Date: 20170707
  Receipt Date: 20170707
  Transmission Date: 20171127
  Serious: No
  Sender: FDA-Public Use
  Company Number: US-ROCHE-1035220

PATIENT

DRUGS (2)
  1. CYTOVENE IV [Suspect]
     Active Substance: GANCICLOVIR SODIUM
     Indication: PRODUCT USED FOR UNKNOWN INDICATION
     Route: 065
  2. PRIMAXIN IV [Interacting]
     Active Substance: CILASTATIN SODIUM\IMIPENEM
     Indication: INFECTION

REACTIONS (2)
  - Infection [Unknown]
  - Drug interaction [Unknown]
